FAERS Safety Report 16022120 (Version 1)
Quarter: 2019Q1

REPORT INFORMATION
  Report Type: Spontaneous
  Country: JP (occurrence: JP)
  Receive Date: 20190301
  Receipt Date: 20190301
  Transmission Date: 20190418
  Serious: Yes (Death, Hospitalization)
  Sender: FDA-Public Use
  Company Number: JP-STRIDES ARCOLAB LIMITED-2019SP001855

PATIENT
  Age: 44 Year
  Sex: Male

DRUGS (6)
  1. ACYCLOVIR                          /00587301/ [Concomitant]
     Active Substance: ACYCLOVIR
     Indication: INFECTION PROPHYLAXIS
     Dosage: UNK
     Route: 065
  2. MYCOPHENOLATE MOFETIL. [Suspect]
     Active Substance: MYCOPHENOLATE MOFETIL
     Indication: PROPHYLAXIS AGAINST GRAFT VERSUS HOST DISEASE
     Dosage: 1000 MG, EVERY 8 HRS FROM DAY 1-30 OF TRANSPLANTATION
     Route: 065
  3. TACROLIMUS. [Suspect]
     Active Substance: TACROLIMUS
     Indication: PROPHYLAXIS AGAINST GRAFT VERSUS HOST DISEASE
     Dosage: UNK
     Route: 065
  4. CYCLOPHOSPHAMIDE. [Concomitant]
     Active Substance: CYCLOPHOSPHAMIDE
     Indication: BONE MARROW CONDITIONING REGIMEN
     Dosage: UNK
     Route: 065
  5. MYCOPHENOLATE MOFETIL. [Suspect]
     Active Substance: MYCOPHENOLATE MOFETIL
     Dosage: UNK, DOSE TAPERED AT THE RATE OF 750 MG/WEEK FROM DAY 31-52
     Route: 065
  6. VALACYCLOVIR                       /01269701/ [Concomitant]
     Active Substance: VALACYCLOVIR HYDROCHLORIDE
     Indication: INFECTION PROPHYLAXIS
     Dosage: UNK
     Route: 065

REACTIONS (15)
  - Human herpesvirus 6 infection [Recovered/Resolved]
  - Temperature regulation disorder [Unknown]
  - Urinary retention [Unknown]
  - Autonomic nervous system imbalance [Unknown]
  - Disorientation [Recovered/Resolved]
  - Hyperhidrosis [Unknown]
  - Amnesia [Recovered/Resolved]
  - Encephalitis [Recovered/Resolved]
  - Hypothermia [Unknown]
  - Altered state of consciousness [Recovered/Resolved]
  - Pneumonia [Fatal]
  - Status epilepticus [Recovered/Resolved]
  - Hypertension [Unknown]
  - Seizure [Recovered/Resolved]
  - Off label use [Unknown]
